FAERS Safety Report 9055668 (Version 1)
Quarter: 2013Q1

REPORT INFORMATION
  Report Type: Report from Study
  Country: TR (occurrence: TR)
  Receive Date: 20130206
  Receipt Date: 20130206
  Transmission Date: 20140127
  Serious: Yes (Other)
  Sender: FDA-Public Use
  Company Number: TR-ROCHE-1187908

PATIENT
  Sex: Female

DRUGS (2)
  1. XELODA [Suspect]
     Indication: GASTRIC CANCER
     Route: 048
     Dates: start: 20120225, end: 201212
  2. XELODA [Suspect]
     Route: 048
     Dates: start: 20120225, end: 201212

REACTIONS (1)
  - Metastases to neck [Not Recovered/Not Resolved]
